FAERS Safety Report 7647126-7 (Version None)
Quarter: 2011Q3

REPORT INFORMATION
  Report Type: 
  Country: None (occurrence: None)
  Receive Date: 20110801
  Receipt Date: 20110721
  Transmission Date: 20111222
  Serious: Yes (Hospitalization)
  Sender: FDA-Public Use
  Company Number: JP-JNJFOC-20110710938

PATIENT
  Age: 68 Year
  Sex: Female

DRUGS (7)
  1. QUETIAPINE FUMARATE [Suspect]
     Indication: DEPRESSION
     Route: 065
  2. RISPERIDONE [Suspect]
     Indication: DEPRESSION
     Route: 048
  3. RISPERIDONE [Suspect]
     Indication: ANXIETY
     Route: 048
  4. ANTIPSYCHOTICS [Suspect]
     Indication: ANXIETY
     Route: 065
  5. ANTIPSYCHOTICS [Suspect]
     Indication: DEPRESSION
     Route: 065
  6. QUETIAPINE FUMARATE [Suspect]
     Indication: ANXIETY
     Route: 065
  7. SLEEPING PILLS (NOS) [Suspect]
     Indication: SLEEP DISORDER
     Route: 065

REACTIONS (1)
  - COGNITIVE DISORDER [None]
